FAERS Safety Report 25087329 (Version 1)
Quarter: 2025Q1

REPORT INFORMATION
  Report Type: Spontaneous
  Country: GR (occurrence: GR)
  Receive Date: 20250318
  Receipt Date: 20250318
  Transmission Date: 20250409
  Serious: Yes (Hospitalization)
  Sender: MERCK SHARP & DOHME LLC
  Company Number: GR-009507513-2265408

PATIENT
  Age: 15 Month
  Sex: Female

DRUGS (2)
  1. MEASLES-MUMPS-RUBELLA VIRUS VACCINE [Suspect]
     Active Substance: MEASLES-MUMPS-RUBELLA VIRUS VACCINE
     Indication: Prophylaxis
     Route: 065
  2. STERILE DILUENT (WATER) [Suspect]
     Active Substance: WATER
     Indication: Prophylaxis
     Route: 065

REACTIONS (2)
  - Febrile convulsion [Recovered/Resolved]
  - Viral rash [Recovered/Resolved]
